FAERS Safety Report 21846551 (Version 4)
Quarter: 2023Q1

REPORT INFORMATION
  Report Type: Spontaneous
  Country: DE (occurrence: DE)
  Receive Date: 20230111
  Receipt Date: 20230207
  Transmission Date: 20230418
  Serious: Yes (Other)
  Sender: FDA-Public Use
  Company Number: DE-BRISTOL-MYERS SQUIBB COMPANY-2022-153154

PATIENT
  Age: 70 Year
  Sex: Female
  Weight: 85 kg

DRUGS (2)
  1. ELIQUIS [Suspect]
     Active Substance: APIXABAN
     Indication: Embolism venous
     Route: 048
     Dates: start: 20220615, end: 20221120
  2. METHOTREXATE [Concomitant]
     Active Substance: METHOTREXATE
     Indication: Felty^s syndrome
     Route: 048
     Dates: start: 2016, end: 202211

REACTIONS (4)
  - Thrombocytosis [Unknown]
  - Thrombocytopenia [Not Recovered/Not Resolved]
  - Embolism [Unknown]
  - Drug ineffective [Unknown]

NARRATIVE: CASE EVENT DATE: 20221101
